FAERS Safety Report 25310837 (Version 1)
Quarter: 2025Q2

REPORT INFORMATION
  Report Type: Report from Study
  Country: US (occurrence: US)
  Receive Date: 20250514
  Receipt Date: 20250514
  Transmission Date: 20250717
  Serious: Yes (Other)
  Sender: ALEXION PHARMACEUTICALS
  Company Number: US-AstraZeneca-CH-00841783A

PATIENT

DRUGS (1)
  1. STRENSIQ [Suspect]
     Active Substance: ASFOTASE ALFA
     Indication: Hypophosphatasia
     Route: 065

REACTIONS (8)
  - Pituitary tumour [Unknown]
  - Injection site pain [Recovered/Resolved with Sequelae]
  - Anaemia [Unknown]
  - Blood testosterone decreased [Unknown]
  - Illness [Recovered/Resolved]
  - Platelet count increased [Unknown]
  - Iron binding capacity total decreased [Unknown]
  - Foot fracture [Recovering/Resolving]
